FAERS Safety Report 7916778-6 (Version None)
Quarter: 2011Q4

REPORT INFORMATION
  Report Type: 
  Country: None (occurrence: None)
  Receive Date: 20111116
  Receipt Date: 20111109
  Transmission Date: 20120403
  Serious: Yes (Hospitalization, Other)
  Sender: FDA-Public Use
  Company Number: US-ELI_LILLY_AND_COMPANY-US201111003791

PATIENT
  Age: 22 Year
  Sex: Male

DRUGS (2)
  1. HUMATROPE [Suspect]
     Indication: PITUITARY TUMOUR
     Dosage: UNK, QD
     Route: 065
     Dates: start: 20010101
  2. TESTOSTERONE [Concomitant]
     Dosage: UNK, UNKNOWN
     Route: 065
     Dates: start: 20010101

REACTIONS (4)
  - PITUITARY TUMOUR [None]
  - ROAD TRAFFIC ACCIDENT [None]
  - HYPERTENSION [None]
  - AMNESIA [None]
